FAERS Safety Report 23249376 (Version 1)
Quarter: 2023Q4

REPORT INFORMATION
  Report Type: Spontaneous
  Country: ES (occurrence: ES)
  Receive Date: 20231201
  Receipt Date: 20231201
  Transmission Date: 20240110
  Serious: Yes (Other)
  Sender: FDA-Public Use
  Company Number: None

PATIENT
  Age: 58 Year
  Sex: Male

DRUGS (6)
  1. SUNITINIB [Suspect]
     Active Substance: SUNITINIB
     Indication: Metastases to lymph nodes
     Dosage: 50 MILLIGRAM, QD (FOUR WEEKS ON/TWO OFF)
  2. SUNITINIB [Suspect]
     Active Substance: SUNITINIB
     Indication: Metastases to bone
  3. SUNITINIB [Suspect]
     Active Substance: SUNITINIB
     Indication: Renal cell carcinoma stage IV
  4. DURVALUMAB [Suspect]
     Active Substance: DURVALUMAB
     Indication: Metastases to bone
     Dosage: 1500 MILLIGRAM (EVERY 4 WEEKS)/ ON DAY 1
  5. DURVALUMAB [Suspect]
     Active Substance: DURVALUMAB
     Indication: Metastases to lymph nodes
  6. DURVALUMAB [Suspect]
     Active Substance: DURVALUMAB
     Indication: Renal cell carcinoma stage IV

REACTIONS (3)
  - Diffuse uveal melanocytic proliferation [Recovered/Resolved]
  - Disease progression [Unknown]
  - Drug ineffective [Unknown]
